FAERS Safety Report 9125138 (Version 2)
Quarter: 2013Q2

REPORT INFORMATION
  Report Type: Spontaneous
  Country: BE (occurrence: BE)
  Receive Date: 20130227
  Receipt Date: 20130402
  Transmission Date: 20140414
  Serious: Yes (Other)
  Sender: FDA-Public Use
  Company Number: BE-ROCHE-1195561

PATIENT
  Age: 87 Year
  Sex: Female

DRUGS (9)
  1. LUCENTIS [Suspect]
     Indication: CHOROIDAL NEOVASCULARISATION
     Route: 050
     Dates: start: 20120301
  2. LUCENTIS [Suspect]
     Route: 050
     Dates: start: 20120329
  3. LUCENTIS [Suspect]
     Route: 050
     Dates: start: 20120426
  4. LUCENTIS [Suspect]
     Route: 050
     Dates: start: 20121122
  5. LUCENTIS [Suspect]
     Dosage: IN THE MORNING
     Route: 050
     Dates: start: 20121220, end: 20121220
  6. LISINOPRIL [Concomitant]
  7. FENOFIBRATE [Concomitant]
  8. ASAFLOW [Concomitant]
  9. ZOLPIDEM [Concomitant]

REACTIONS (2)
  - Cerebrovascular accident [Recovered/Resolved]
  - Pain in extremity [Recovered/Resolved]
